FAERS Safety Report 8161926-9 (Version None)
Quarter: 2012Q1

REPORT INFORMATION
  Report Type: 
  Country: None (occurrence: None)
  Receive Date: 20120224
  Receipt Date: 20120213
  Transmission Date: 20120608
  Serious: Yes (Death, Life-Threatening, Other)
  Sender: FDA-Public Use
  Company Number: US-ELI_LILLY_AND_COMPANY-US201202003976

PATIENT
  Age: 19 Year
  Sex: Female

DRUGS (3)
  1. TEMAZEPAM [Suspect]
  2. VENLAFAXINE [Concomitant]
  3. OLANZAPINE [Suspect]

REACTIONS (2)
  - CARDIO-RESPIRATORY ARREST [None]
  - COMPLETED SUICIDE [None]
